FAERS Safety Report 8247322-4 (Version None)
Quarter: 2012Q1

REPORT INFORMATION
  Report Type: 
  Country: None (occurrence: None)
  Receive Date: 20120328
  Receipt Date: 20120328
  Transmission Date: 20120608
  Serious: No
  Sender: FDA-Public Use
  Company Number: None

PATIENT
  Age: 42 Year
  Sex: Female

DRUGS (1)
  1. LEVOCARNITINE [Suspect]
     Dates: start: 20100615, end: 20100721

REACTIONS (5)
  - CHOLESTASIS [None]
  - INFLAMMATION [None]
  - BILIARY TRACT DISORDER [None]
  - ABDOMINAL PAIN [None]
  - JAUNDICE [None]
